FAERS Safety Report 19766661 (Version 1)
Quarter: 2021Q3

REPORT INFORMATION
  Report Type: Spontaneous
  Country: FR (occurrence: FR)
  Receive Date: 20210830
  Receipt Date: 20210830
  Transmission Date: 20211014
  Serious: Yes (Death)
  Sender: FDA-Public Use
  Company Number: FR-ASTRAZENECA-2021A700149

PATIENT
  Age: 74 Year
  Sex: Female

DRUGS (1)
  1. GEFITINIB. [Suspect]
     Active Substance: GEFITINIB
     Indication: ADENOCARCINOMA
     Dosage: UNK
     Route: 048
     Dates: start: 201711

REACTIONS (2)
  - Drug resistance [Fatal]
  - Squamous cell carcinoma [Fatal]
